FAERS Safety Report 9580353 (Version 2)
Quarter: 2014Q1

REPORT INFORMATION
  Report Type: Spontaneous
  Country: GB (occurrence: GB)
  Receive Date: 20131002
  Receipt Date: 20140203
  Transmission Date: 20141002
  Serious: Yes (Hospitalization)
  Sender: FDA-Public Use
  Company Number: GB-ROCHE-1283611

PATIENT
  Age: 84 Year
  Sex: Female
  Weight: 57 kg

DRUGS (3)
  1. XELODA [Suspect]
     Indication: METASTATIC NEOPLASM
     Route: 048
     Dates: start: 20130913, end: 20130918
  2. METOCLOPRAMIDE [Concomitant]
     Route: 065
     Dates: start: 20130913
  3. RANITIDINE [Concomitant]
     Route: 065

REACTIONS (2)
  - Arteriospasm coronary [Unknown]
  - Acute myocardial infarction [Unknown]
